FAERS Safety Report 4317404-8 (Version None)
Quarter: 2004Q1

REPORT INFORMATION
  Report Type: 
  Country: None (occurrence: None)
  Receive Date: 20040312
  Receipt Date: 20040303
  Transmission Date: 20041129
  Serious: Yes (Hospitalization)
  Sender: FDA-Public Use
  Company Number: 04P-087-0252385-00

PATIENT
  Age: 35 Year
  Sex: Male

DRUGS (15)
  1. KALETRA [Suspect]
     Indication: HIV INFECTION
     Dosage: 6 CAPSULE, 1 IN 1 D, PER ORAL
     Route: 048
     Dates: start: 20020213, end: 20030321
  2. ZIDOVUDINE [Suspect]
     Indication: HIV INFECTION
     Dosage: 400 MG, 1 IN 1 D, PER ORAL
     Route: 048
     Dates: start: 20020401, end: 20030321
  3. DIDANOSINE [Suspect]
     Indication: HIV INFECTION
     Dosage: PER ORAL
     Route: 048
     Dates: start: 20020613, end: 20030321
  4. LAMIVUDINE [Suspect]
     Indication: HIV INFECTION
     Dosage: 300 MG, 1 IN 1 D, PER ORAL
     Route: 048
     Dates: start: 20020401, end: 20020612
  5. NELFINAVIR [Suspect]
     Indication: HIV INFECTION
     Dosage: 2.5 MG, 1 IN 1 D, PER ORAL
     Route: 048
     Dates: start: 20020401, end: 20020612
  6. LOPERAMIDE HYDROCHLORIDE [Concomitant]
  7. FAMOTIDINE [Concomitant]
  8. TANDOSPIRONE CITRATE [Concomitant]
  9. MOFEZOLAC [Concomitant]
  10. MULTIVITAMIN [Concomitant]
  11. ZOLPIDEM TARTRATE [Concomitant]
  12. FEXOFENADINE HYDROCHLORIDE [Concomitant]
  13. NITRAZEPAM [Concomitant]
  14. SODIUM CROMOGLICATE [Concomitant]
  15. BROTIZOLAM [Concomitant]

REACTIONS (2)
  - EPILEPSY [None]
  - HYPERLIPIDAEMIA [None]
